FAERS Safety Report 6759031-9 (Version None)
Quarter: 2010Q2

REPORT INFORMATION
  Report Type: 
  Country: None (occurrence: None)
  Receive Date: 20100607
  Receipt Date: 20100528
  Transmission Date: 20101027
  Serious: Yes (Other)
  Sender: FDA-Public Use
  Company Number: GB-JNJFOC-20100406148

PATIENT
  Sex: Male
  Weight: 135 kg

DRUGS (5)
  1. REMICADE [Suspect]
     Indication: CROHN'S DISEASE
     Dosage: A TOTAL OF APPROXIMATELY 17 INFUSIONS
     Route: 042
  2. REMICADE [Suspect]
     Route: 042
  3. MERCAPTOPURINE [Concomitant]
     Indication: CROHN'S DISEASE
  4. ASACOL [Concomitant]
     Indication: CROHN'S DISEASE
  5. PREDNISOLONE [Concomitant]
     Indication: CROHN'S DISEASE

REACTIONS (7)
  - CHEST PAIN [None]
  - DYSPNOEA [None]
  - ERYTHEMA [None]
  - INFUSION RELATED REACTION [None]
  - PRURITUS [None]
  - TACHYCARDIA [None]
  - THROAT TIGHTNESS [None]
